FAERS Safety Report 4557079-6 (Version None)
Quarter: 2005Q1

REPORT INFORMATION
  Report Type: 
  Country: None (occurrence: None)
  Receive Date: 20050120
  Receipt Date: 20050110
  Transmission Date: 20050727
  Serious: Yes (Hospitalization)
  Sender: FDA-Public Use
  Company Number: AU-GLAXOSMITHKLINE-B0364718A

PATIENT
  Sex: Female

DRUGS (3)
  1. AVANDIA [Suspect]
  2. INSULIN [Concomitant]
     Indication: BLOOD GLUCOSE
  3. DIABEX [Concomitant]

REACTIONS (8)
  - BALANCE DISORDER [None]
  - DIABETES MELLITUS INADEQUATE CONTROL [None]
  - FALL [None]
  - KNEE OPERATION [None]
  - LIGAMENT INJURY [None]
  - PALPITATIONS [None]
  - SYNCOPE [None]
  - URINARY TRACT INFECTION [None]
